FAERS Safety Report 17056806 (Version 3)
Quarter: 2020Q2

REPORT INFORMATION
  Report Type: Spontaneous
  Country: CA (occurrence: CA)
  Receive Date: 20191121
  Receipt Date: 20200429
  Transmission Date: 20200713
  Serious: Yes (Other)
  Sender: FDA-Public Use
  Company Number: CA-AUROBINDO-AUR-APL-2019-073714

PATIENT
  Age: 64 Year
  Sex: Female

DRUGS (7)
  1. CICLOSPORIN [Concomitant]
     Active Substance: CYCLOSPORINE
     Indication: PRODUCT USED FOR UNKNOWN INDICATION
     Dosage: UNK
     Route: 065
  2. PREDNISONE. [Concomitant]
     Active Substance: PREDNISONE
     Indication: CYTOMEGALOVIRUS INFECTION
     Dosage: UNK
     Route: 065
  3. ACYCLOVIR. [Suspect]
     Active Substance: ACYCLOVIR
     Indication: ANTIVIRAL PROPHYLAXIS
     Dosage: UNK
     Route: 065
  4. FOSCARNET SODIUM. [Suspect]
     Active Substance: FOSCARNET SODIUM
     Indication: CYTOMEGALOVIRUS INFECTION
     Dosage: UNK
     Route: 042
  5. GANCICLOVIR INJECTION [Suspect]
     Active Substance: GANCICLOVIR
     Indication: CYTOMEGALOVIRUS INFECTION
     Dosage: 10.0 MILLIGRAM/KILOGRAM, TWO TIMES A DAY
     Route: 042
  6. GANCICLOVIR INJECTION [Suspect]
     Active Substance: GANCICLOVIR
     Dosage: 5.0 MILLIGRAM/KILOGRAM, TWO TIMES A DAY
     Route: 042
  7. VALGANCICLOVIR. [Suspect]
     Active Substance: VALGANCICLOVIR
     Indication: CYTOMEGALOVIRUS INFECTION
     Dosage: 900.0 MILLIGRAM/KILOGRAM, TWO TIMES A DAY
     Route: 065

REACTIONS (4)
  - Intentional product use issue [Unknown]
  - Pathogen resistance [Unknown]
  - Genital lesion [Unknown]
  - Off label use [Unknown]
